FAERS Safety Report 10802274 (Version 1)
Quarter: 2015Q1

REPORT INFORMATION
  Report Type: Report from Study
  Country: JP (occurrence: JP)
  Receive Date: 20150217
  Receipt Date: 20150217
  Transmission Date: 20150721
  Serious: Yes (Hospitalization)
  Sender: FDA-Public Use
  Company Number: JP-JNJFOC-20150207013

PATIENT
  Age: 81 Year
  Sex: Male

DRUGS (11)
  1. OMEPRAZON [Concomitant]
     Active Substance: OMEPRAZOLE
     Route: 048
  2. MAINTATE [Concomitant]
     Active Substance: BISOPROLOL FUMARATE
     Route: 048
  3. SELARA (EPLERENONE) [Concomitant]
     Active Substance: EPLERENONE
     Route: 048
  4. XARELTO [Suspect]
     Active Substance: RIVAROXABAN
     Indication: CEREBROVASCULAR ACCIDENT PROPHYLAXIS
     Route: 048
     Dates: start: 20131216, end: 20140624
  5. FERRUM [Concomitant]
     Active Substance: FERROUS FUMARATE
     Route: 048
  6. FEBUXOSTAT. [Concomitant]
     Active Substance: FEBUXOSTAT
     Route: 048
  7. BIO-THREE [Concomitant]
     Active Substance: HERBALS
     Route: 048
  8. XARELTO [Suspect]
     Active Substance: RIVAROXABAN
     Indication: THROMBOSIS PROPHYLAXIS
     Route: 048
     Dates: start: 20131216, end: 20140624
  9. XARELTO [Suspect]
     Active Substance: RIVAROXABAN
     Indication: ATRIAL FIBRILLATION
     Route: 048
     Dates: start: 20131216, end: 20140624
  10. LASIX [Concomitant]
     Active Substance: FUROSEMIDE
     Route: 048
  11. COVERSYL [Concomitant]
     Active Substance: PERINDOPRIL
     Route: 048

REACTIONS (1)
  - Anaemia [Recovering/Resolving]

NARRATIVE: CASE EVENT DATE: 20140624
